FAERS Safety Report 8854484 (Version 1)
Quarter: 2012Q4

REPORT INFORMATION
  Report Type: 
  Country: US (occurrence: US)
  Receive Date: 20121023
  Receipt Date: 20121023
  Transmission Date: 20130627
  Serious: Yes (Other)
  Sender: FDA-Public Use
  Company Number: US-BAYER-2012-108269

PATIENT
  Age: 33 Year
  Sex: Female

DRUGS (1)
  1. MIRENA [Suspect]
     Indication: CONTRACEPTION
     Dosage: 20 ?g/d, UNK
     Route: 015
     Dates: start: 20121002, end: 20121002

REACTIONS (4)
  - Convulsion [Recovered/Resolved]
  - Muscle rigidity [Recovered/Resolved]
  - Foaming at mouth [Recovered/Resolved]
  - Device difficult to use [Recovered/Resolved]
